FAERS Safety Report 9404235 (Version 1)
Quarter: 2013Q3

REPORT INFORMATION
  Report Type: Report from Study
  Country: US (occurrence: US)
  Receive Date: 20130717
  Receipt Date: 20130717
  Transmission Date: 20140515
  Serious: Yes (Hospitalization)
  Sender: FDA-Public Use
  Company Number: US-ROCHE-1226204

PATIENT
  Age: 53 Year
  Sex: Male
  Weight: 61.29 kg

DRUGS (6)
  1. ZELBORAF [Suspect]
     Indication: MALIGNANT MELANOMA
     Route: 048
     Dates: start: 20130509, end: 20130520
  2. ZELBORAF [Suspect]
     Route: 048
     Dates: start: 20130610
  3. NAPROXEN [Concomitant]
     Indication: PAIN MANAGEMENT
     Route: 048
  4. MORPHINE SUSTAINED RELEASE [Concomitant]
     Indication: PAIN MANAGEMENT
     Route: 048
  5. MORPHINE [Concomitant]
     Indication: PAIN MANAGEMENT
     Route: 048
  6. MORPHINE [Concomitant]
     Route: 048
     Dates: start: 20130515

REACTIONS (17)
  - Joint range of motion decreased [Not Recovered/Not Resolved]
  - Limb discomfort [Not Recovered/Not Resolved]
  - Arthralgia [Not Recovered/Not Resolved]
  - Pain in extremity [Not Recovered/Not Resolved]
  - Arthralgia [Not Recovered/Not Resolved]
  - Arthralgia [Not Recovered/Not Resolved]
  - Gout [Not Recovered/Not Resolved]
  - Blister [Unknown]
  - Sunburn [Unknown]
  - Renal failure [Unknown]
  - Hepatic failure [Unknown]
  - Skin exfoliation [Recovering/Resolving]
  - Weight decreased [Unknown]
  - Nausea [Not Recovered/Not Resolved]
  - Vomiting [Not Recovered/Not Resolved]
  - Decreased appetite [Not Recovered/Not Resolved]
  - Rash generalised [Recovering/Resolving]
